FAERS Safety Report 7457402-9 (Version None)
Quarter: 2011Q2

REPORT INFORMATION
  Report Type: 
  Country: None (occurrence: None)
  Receive Date: 20110426
  Receipt Date: 20110412
  Transmission Date: 20111010
  Serious: Yes (Other)
  Sender: FDA-Public Use
  Company Number: 031166

PATIENT
  Sex: Female
  Weight: 80.7 kg

DRUGS (8)
  1. GLYBURIDE [Concomitant]
  2. LEVETORACETAM [Concomitant]
  3. LACOSAMIDE [Suspect]
     Indication: CONVULSION
     Dosage: 50 MG BID ORAL, 100 MG BID ORAL, 50 MG BID ORAL
     Route: 048
     Dates: start: 20110207, end: 20110226
  4. LACOSAMIDE [Suspect]
     Indication: CONVULSION
     Dosage: 50 MG BID ORAL, 100 MG BID ORAL, 50 MG BID ORAL
     Route: 048
     Dates: start: 20110121, end: 20110101
  5. LACOSAMIDE [Suspect]
     Indication: CONVULSION
     Dosage: 50 MG BID ORAL, 100 MG BID ORAL, 50 MG BID ORAL
     Route: 048
     Dates: start: 20110207, end: 20110301
  6. GALENIC /HYDROCHLOROTHIAZIDE/LISINOPRIL/ [Concomitant]
  7. SITAGLIPTIN [Concomitant]
  8. CYMBALTA [Concomitant]

REACTIONS (7)
  - PRURITUS [None]
  - VISION BLURRED [None]
  - HYPERTENSION [None]
  - CONVULSION [None]
  - BLOOD GLUCOSE INCREASED [None]
  - SWELLING FACE [None]
  - HEADACHE [None]
